FAERS Safety Report 12366030 (Version 1)
Quarter: 2016Q2

REPORT INFORMATION
  Report Type: Spontaneous
  Country: US (occurrence: US)
  Receive Date: 20160513
  Receipt Date: 20160513
  Transmission Date: 20160815
  Serious: Yes (Other)
  Sender: FDA-Public Use
  Company Number: US-LPDUSPRD-20160219

PATIENT
  Age: 82 Year
  Sex: Female

DRUGS (1)
  1. INJECTAFER [Suspect]
     Active Substance: FERRIC CARBOXYMALTOSE
     Dosage: 2 INFUSIONS; DOSE UNKNOWN
     Route: 042

REACTIONS (2)
  - Rash [Recovered/Resolved]
  - Anaphylactic reaction [Unknown]
